FAERS Safety Report 24391751 (Version 1)
Quarter: 2024Q4

REPORT INFORMATION
  Report Type: Spontaneous
  Country: GB (occurrence: GB)
  Receive Date: 20241003
  Receipt Date: 20241003
  Transmission Date: 20250114
  Serious: Yes (Disabling, Other)
  Sender: OTSUKA
  Company Number: None

PATIENT
  Age: 58 Year
  Sex: Female
  Weight: 95 kg

DRUGS (5)
  1. ARIPIPRAZOLE [Suspect]
     Active Substance: ARIPIPRAZOLE
     Indication: Mania
     Dosage: UNK
     Route: 065
     Dates: start: 20210606, end: 20210712
  2. QUETIAPINE [Suspect]
     Active Substance: QUETIAPINE
     Indication: Antipsychotic therapy
     Dosage: 400 MG
     Route: 065
  3. QUETIAPINE [Suspect]
     Active Substance: QUETIAPINE
     Dosage: 300 MG
     Route: 065
  4. QUETIAPINE [Suspect]
     Active Substance: QUETIAPINE
     Dosage: 200 MG
     Route: 065
  5. ZOPICLONE [Concomitant]
     Active Substance: ZOPICLONE
     Indication: Insomnia
     Dosage: UNK
     Route: 065
     Dates: end: 20160606

REACTIONS (4)
  - Osteoarthritis [Recovered/Resolved with Sequelae]
  - Heart rate increased [Recovered/Resolved]
  - Constipation [Unknown]
  - Product use in unapproved indication [Unknown]

NARRATIVE: CASE EVENT DATE: 20210606
